FAERS Safety Report 10852355 (Version 1)
Quarter: 2015Q1

REPORT INFORMATION
  Report Type: Spontaneous
  Country: US (occurrence: US)
  Receive Date: 20150222
  Receipt Date: 20150222
  Transmission Date: 20150721
  Serious: No
  Sender: FDA-Public Use
  Company Number: US-ALLERGAN-1425480US

PATIENT
  Age: 34 Year
  Sex: Female

DRUGS (5)
  1. SUMATRIPTAN. [Concomitant]
     Active Substance: SUMATRIPTAN
  2. BOTOX [Suspect]
     Active Substance: ONABOTULINUMTOXINA
     Indication: MIGRAINE
     Dosage: 200 UNITS, SINGLE
     Route: 030
     Dates: start: 20141201, end: 20141201
  3. ZOFRAN [Concomitant]
     Active Substance: ONDANSETRON HYDROCHLORIDE
  4. ZOMIG [Concomitant]
     Active Substance: ZOLMITRIPTAN
  5. ROBAXIN [Concomitant]
     Active Substance: METHOCARBAMOL

REACTIONS (3)
  - Off label use [Unknown]
  - Panic attack [Unknown]
  - Anxiety [Unknown]

NARRATIVE: CASE EVENT DATE: 20141203
